FAERS Safety Report 15825152 (Version 1)
Quarter: 2019Q1

REPORT INFORMATION
  Report Type: Spontaneous
  Country: IN (occurrence: IN)
  Receive Date: 20190115
  Receipt Date: 20190115
  Transmission Date: 20190417
  Serious: Yes (Death, Other)
  Sender: FDA-Public Use
  Company Number: IN-ROCHE-2242986

PATIENT
  Age: 72 Year
  Sex: Female

DRUGS (1)
  1. BICELTIS [Suspect]
     Active Substance: TRASTUZUMAB
     Indication: GASTROINTESTINAL STROMAL TUMOUR
     Route: 042
     Dates: start: 20181009

REACTIONS (4)
  - Death [Fatal]
  - Intentional product use issue [Unknown]
  - Off label use [Unknown]
  - Metastases to central nervous system [Unknown]

NARRATIVE: CASE EVENT DATE: 20181206
